FAERS Safety Report 10531088 (Version 3)
Quarter: 2015Q1

REPORT INFORMATION
  Report Type: Report from Study
  Country: BR (occurrence: BR)
  Receive Date: 20141021
  Receipt Date: 20150311
  Transmission Date: 20150720
  Serious: Yes (Hospitalization, Other)
  Sender: FDA-Public Use
  Company Number: BR-ABBVIE-14K-020-1295804-00

PATIENT
  Age: 80 Year
  Sex: Male
  Weight: 48 kg

DRUGS (2)
  1. HUMIRA [Suspect]
     Active Substance: ADALIMUMAB
     Indication: PSORIATIC ARTHROPATHY
     Route: 058
     Dates: start: 20131005, end: 201409
  2. NAPRIX [Concomitant]
     Active Substance: RAMIPRIL
     Indication: BLOOD PRESSURE
     Route: 048
     Dates: start: 2004

REACTIONS (9)
  - Arterial occlusive disease [Unknown]
  - Psoriasis [Unknown]
  - Depression [Unknown]
  - Renal disorder [Unknown]
  - Infarction [Recovered/Resolved]
  - Chronic kidney disease [Recovering/Resolving]
  - Pruritus generalised [Not Recovered/Not Resolved]
  - Stress [Unknown]
  - Pain [Unknown]

NARRATIVE: CASE EVENT DATE: 2014
